FAERS Safety Report 5113429-3 (Version None)
Quarter: 2006Q3

REPORT INFORMATION
  Report Type: 
  Country: None (occurrence: None)
  Receive Date: 20060921
  Receipt Date: 20060921
  Transmission Date: 20061208
  Serious: Yes (Disabling)
  Sender: FDA-Public Use
  Company Number: None

PATIENT
  Age: 72 Year
  Sex: Male
  Weight: 79.9 kg

DRUGS (1)
  1. IMATINIB 100 MG [Suspect]
     Indication: CHRONIC MYELOID LEUKAEMIA
     Dosage: 100 MG BID PO
     Route: 048

REACTIONS (2)
  - MUCOSAL INFLAMMATION [None]
  - RASH MACULO-PAPULAR [None]
